FAERS Safety Report 12613473 (Version 1)
Quarter: 2016Q3

REPORT INFORMATION
  Report Type: Spontaneous
  Country: US (occurrence: None)
  Receive Date: 20160801
  Receipt Date: 20160801
  Transmission Date: 20161109
  Serious: Yes (Other)
  Sender: FDA-Public Use
  Company Number: None

PATIENT
  Age: 49 Year
  Sex: Male
  Weight: 79.38 kg

DRUGS (11)
  1. FOLAPRO [Concomitant]
  2. DICLOXACILLIN [Suspect]
     Active Substance: DICLOXACILLIN
     Indication: CELLULITIS
     Dosage: 1 PILL EVERY 6 HOURS 1 PER SIX HOURS BY MOUTH
     Route: 048
     Dates: start: 20160726
  3. COENZYME Q10 [Concomitant]
     Active Substance: UBIDECARENONE
  4. CRESTOR [Concomitant]
     Active Substance: ROSUVASTATIN CALCIUM
  5. VITAMIN SUPPLEMENTS [Concomitant]
     Active Substance: VITAMINS
  6. ARBONNE MULTIVITAMINS [Concomitant]
  7. E [Concomitant]
  8. ARBONNE PROTIEN SHAKES [Concomitant]
  9. VITAMIN D3 [Concomitant]
     Active Substance: CHOLECALCIFEROL
  10. CITRICAL [Concomitant]
     Active Substance: CALCIUM CITRATE
  11. PHYTOSPORT PROBIOTICS [Concomitant]

REACTIONS (1)
  - Joint swelling [None]

NARRATIVE: CASE EVENT DATE: 20160728
